FAERS Safety Report 11221613 (Version 1)
Quarter: 2015Q2

REPORT INFORMATION
  Report Type: Spontaneous
  Country: FR (occurrence: FR)
  Receive Date: 20150626
  Receipt Date: 20150626
  Transmission Date: 20150821
  Serious: Yes (Hospitalization)
  Sender: FDA-Public Use
  Company Number: 2015SP002132

PATIENT
  Age: 50 Year
  Sex: Female

DRUGS (1)
  1. ZEBINIX (ESLICARBAZEPINE ACETATE) [Suspect]
     Active Substance: ESLICARBAZEPINE ACETATE
     Indication: PARTIAL SEIZURES
     Route: 048
     Dates: start: 20150515, end: 20150604

REACTIONS (6)
  - Pyrexia [Recovering/Resolving]
  - Rash maculo-papular [Unknown]
  - Off label use [Unknown]
  - Rash pruritic [Unknown]
  - Erythema [Unknown]
  - Rash [Recovering/Resolving]

NARRATIVE: CASE EVENT DATE: 20150515
